FAERS Safety Report 5795366-4 (Version None)
Quarter: 2008Q2

REPORT INFORMATION
  Report Type: 
  Country: None (occurrence: None)
  Receive Date: 20080630
  Receipt Date: 20080625
  Transmission Date: 20081010
  Serious: Yes (Hospitalization)
  Sender: FDA-Public Use
  Company Number: US-GENENTECH-261987

PATIENT
  Age: 59 Year
  Sex: Female

DRUGS (5)
  1. BEVACIZUMAB [Suspect]
     Indication: NON-SMALL CELL LUNG CANCER
     Dosage: UNK, UNK
     Dates: start: 20080324, end: 20080505
  2. ERLOTINIB [Suspect]
     Indication: NON-SMALL CELL LUNG CANCER
     Dosage: UNK, UNK
     Dates: start: 20080324, end: 20080505
  3. TAXOL [Suspect]
     Indication: NON-SMALL CELL LUNG CANCER
     Dates: start: 20080324, end: 20080505
  4. CARBOPLATIN [Suspect]
     Indication: NON-SMALL CELL LUNG CANCER
     Dates: start: 20080324, end: 20080505
  5. RADIATION [Suspect]
     Indication: NON-SMALL CELL LUNG CANCER
     Dates: start: 20080324

REACTIONS (2)
  - HERPES ZOSTER [None]
  - OESOPHAGITIS [None]
